FAERS Safety Report 16925994 (Version 1)
Quarter: 2019Q4

REPORT INFORMATION
  Report Type: Report from Study
  Country: US (occurrence: US)
  Receive Date: 20191016
  Receipt Date: 20191016
  Transmission Date: 20200122
  Serious: Yes (Hospitalization, Other)
  Sender: FDA-Public Use
  Company Number: US-SHIRE-US201902985

PATIENT
  Age: 63 Year
  Sex: Female
  Weight: 76.19 kg

DRUGS (2)
  1. NATPARA (PARATHYROID HORMONE) [Suspect]
     Active Substance: PARATHYROID HORMONE
     Indication: HYPOPARATHYROIDISM
     Dosage: 25 MICROGRAM, 1X/DAY:QD
     Route: 050
     Dates: start: 20151116
  2. CALCIUM [Concomitant]
     Active Substance: CALCIUM
     Indication: SUPPLEMENTATION THERAPY

REACTIONS (12)
  - Drug ineffective [Unknown]
  - Cardiac disorder [Unknown]
  - Gait disturbance [Unknown]
  - Product dose omission [Unknown]
  - Blood calcium increased [Recovered/Resolved]
  - Therapy cessation [Unknown]
  - Chest pain [Unknown]
  - Cardiac arrest [Unknown]
  - Nausea [Unknown]
  - Recalled product [Unknown]
  - Dizziness [Unknown]
  - Muscle spasms [Unknown]

NARRATIVE: CASE EVENT DATE: 20190907
